FAERS Safety Report 9900685 (Version 5)
Quarter: 2014Q3

REPORT INFORMATION
  Report Type: Report from Study
  Country: JP (occurrence: JP)
  Receive Date: 20140217
  Receipt Date: 20140702
  Transmission Date: 20150326
  Serious: Yes (Hospitalization)
  Sender: FDA-Public Use
  Company Number: JP-009507513-1212JPN010765

PATIENT
  Age: 45 Year
  Sex: Male

DRUGS (10)
  1. TRUVADA [Concomitant]
     Active Substance: EMTRICITABINE\TENOFOVIR DISOPROXIL FUMARATE
     Indication: HIV INFECTION
     Dosage: 1 DF, DIVIDED DOSE FREQUENCY UNKNOWN
     Route: 048
     Dates: start: 20060202
  2. SILECE [Concomitant]
     Active Substance: FLUNITRAZEPAM
     Dosage: 2 MG, BID, FORMULATION: POR
     Route: 048
  3. LENDORMIN [Concomitant]
     Active Substance: BROTIZOLAM
     Indication: BIPOLAR I DISORDER
     Dosage: 0.5 MG, QD, FORMULATION: POR
     Route: 048
  4. SEROQUEL [Concomitant]
     Active Substance: QUETIAPINE FUMARATE
     Dosage: 150 MG, QD, FREQUENCY: POR
     Route: 048
     Dates: end: 20120423
  5. ISENTRESS [Suspect]
     Active Substance: RALTEGRAVIR POTASSIUM
     Indication: HIV INFECTION
     Dosage: 800 MG, DIVIDED DOSE FREQUENCY UNKNOWN
     Route: 048
     Dates: start: 20090409
  6. NOVOSEVEN [Concomitant]
     Active Substance: COAGULATION FACTOR VIIA RECOMBINANT HUMAN
     Indication: HAEMOPHILIA
     Dosage: 4.8 MG, 3 X PER MONTH
     Route: 051
  7. FEIBA [Concomitant]
     Active Substance: ANTI-INHIBITOR COAGULANT COMPLEX
     Indication: HAEMOPHILIA
     Dosage: 4 THOUSAND-MILLION UNIT, QM
     Route: 051
  8. SILECE [Concomitant]
     Active Substance: FLUNITRAZEPAM
     Indication: BIPOLAR I DISORDER
     Dosage: 2 MG, QD, FORMULATION: POR
     Route: 048
  9. SEROQUEL [Concomitant]
     Active Substance: QUETIAPINE FUMARATE
     Dosage: 200 MG, QD, FREQUENCY: POR
     Route: 048
     Dates: start: 20120223
  10. SEROQUEL [Concomitant]
     Active Substance: QUETIAPINE FUMARATE
     Indication: BIPOLAR I DISORDER
     Dosage: 50 MG, QD, FORMULATION: POR
     Route: 048
     Dates: start: 20110623, end: 20120222

REACTIONS (3)
  - Iron deficiency anaemia [Recovered/Resolved]
  - Altered state of consciousness [Recovered/Resolved]
  - Gastrointestinal haemorrhage [Recovered/Resolved]

NARRATIVE: CASE EVENT DATE: 20120301
